FAERS Safety Report 24208191 (Version 1)
Quarter: 2024Q3

REPORT INFORMATION
  Report Type: Spontaneous
  Country: IT (occurrence: None)
  Receive Date: 20240814
  Receipt Date: 20240814
  Transmission Date: 20241017
  Serious: Yes (Other)
  Sender: ASTRAZENECA
  Company Number: 2024A178414

PATIENT
  Age: 73 Year
  Sex: Female
  Weight: 54 kg

DRUGS (8)
  1. LYNPARZA [Suspect]
     Active Substance: OLAPARIB
     Dosage: 150 MG 2 TABLETS IN THE MORNING AND 2 TABLETS IN THE EVENING UNTIL 5/2/2024. THEN REDUCED TO 100 ...
     Route: 048
     Dates: start: 20240115
  2. CANDESARTAN CILEXETIL [Concomitant]
     Active Substance: CANDESARTAN CILEXETIL
     Dosage: 8 MG DAILY
  3. DULOXETINE [Concomitant]
     Active Substance: DULOXETINE
  4. NEURONTIN [Concomitant]
     Active Substance: GABAPENTIN
     Dosage: 400 MG, 3 TABLETS DAILY400.0MG UNKNOWN
  5. PANTOPRAZOLE SODIUM [Concomitant]
     Active Substance: PANTOPRAZOLE SODIUM
     Dosage: 20 MG DAILY
  6. CACIT [Concomitant]
     Dosage: 1 GR DAILY
  7. CYANOCOBALAMIN\PYRIDOXINE\THIAMINE [Concomitant]
     Active Substance: CYANOCOBALAMIN\PYRIDOXINE\THIAMINE
  8. LAMIVUDINE TEVA [Concomitant]
     Dosage: 100 MG DAILY

REACTIONS (2)
  - Cutaneous vasculitis [Recovered/Resolved]
  - Glomerular filtration rate decreased [Recovering/Resolving]

NARRATIVE: CASE EVENT DATE: 20240205
